FAERS Safety Report 18274850 (Version 1)
Quarter: 2020Q3

REPORT INFORMATION
  Report Type: Spontaneous
  Country: CN (occurrence: CN)
  Receive Date: 20200917
  Receipt Date: 20200917
  Transmission Date: 20201103
  Serious: Yes (Other)
  Sender: FDA-Public Use
  Company Number: CN-ROCHE-2677988

PATIENT
  Age: 30 Year
  Sex: Male

DRUGS (3)
  1. ACTEMRA [Suspect]
     Active Substance: TOCILIZUMAB
     Indication: POLYARTERITIS NODOSA
     Dosage: DF=TUBE?80MG/4ML
     Route: 041
  2. ACTEMRA [Suspect]
     Active Substance: TOCILIZUMAB
     Dosage: DF=TUBE?80MG/4ML
     Route: 041
  3. ACTEMRA [Suspect]
     Active Substance: TOCILIZUMAB
     Dosage: DF=TUBE?80MG/4ML
     Route: 041

REACTIONS (3)
  - Off label use [Unknown]
  - Asphyxia [Recovered/Resolved]
  - Intentional product use issue [Unknown]
